FAERS Safety Report 4906120-7 (Version None)
Quarter: 2006Q1

REPORT INFORMATION
  Report Type: 
  Country: None (occurrence: None)
  Receive Date: 20060207
  Receipt Date: 20060207
  Transmission Date: 20060701
  Serious: Yes (Death)
  Sender: FDA-Public Use
  Company Number: None

PATIENT
  Sex: Female

DRUGS (3)
  1. BACITRACIN [Suspect]
     Indication: EPISTAXIS
     Dosage: 1 PACKET ONCE NASAL
     Route: 045
  2. BACITRACIN [Suspect]
     Indication: NASAL CAVITY PACKING
     Dosage: 1 PACKET ONCE NASAL
     Route: 045
  3. MEROCEL PACKING [Concomitant]

REACTIONS (12)
  - APNOEA [None]
  - BLOOD PRESSURE DECREASED [None]
  - BRADYCARDIA [None]
  - CARDIO-RESPIRATORY ARREST [None]
  - DRUG HYPERSENSITIVITY [None]
  - ELECTROCARDIOGRAM ST SEGMENT ABNORMAL [None]
  - FEELING HOT [None]
  - FLUSHING [None]
  - LOSS OF CONSCIOUSNESS [None]
  - MYOCARDIAL ISCHAEMIA [None]
  - PULSE ABSENT [None]
  - SNEEZING [None]
